FAERS Safety Report 16377626 (Version 1)
Quarter: 2019Q2

REPORT INFORMATION
  Report Type: Spontaneous
  Country: US (occurrence: US)
  Receive Date: 20190401
  Receipt Date: 20190401
  Transmission Date: 20190711
  Serious: Yes (Hospitalization, Disabling)
  Sender: FDA-Public Use
  Company Number: None

PATIENT
  Age: 61 Year
  Sex: Female
  Weight: 74.25 kg

DRUGS (4)
  1. EFFEXOR XR [Suspect]
     Active Substance: VENLAFAXINE HYDROCHLORIDE
     Indication: DEPRESSION
     Route: 048
  2. CARDIAC PACEAKER [Concomitant]
  3. PROZAC [Concomitant]
     Active Substance: FLUOXETINE HYDROCHLORIDE
  4. LOPRESSOR [Concomitant]
     Active Substance: METOPROLOL TARTRATE

REACTIONS (9)
  - Diarrhoea [None]
  - Paraesthesia [None]
  - Treatment failure [None]
  - Drug withdrawal syndrome [None]
  - Weight increased [None]
  - Nightmare [None]
  - Nausea [None]
  - Vomiting [None]
  - Night sweats [None]

NARRATIVE: CASE EVENT DATE: 20190321
